FAERS Safety Report 15571402 (Version 2)
Quarter: 2018Q4

REPORT INFORMATION
  Report Type: Report from Study
  Country: CO (occurrence: CO)
  Receive Date: 20181031
  Receipt Date: 20181108
  Transmission Date: 20190205
  Serious: Yes (Hospitalization)
  Sender: FDA-Public Use
  Company Number: CO-SA-2018SA028989

PATIENT
  Age: 56 Year
  Sex: Male

DRUGS (1)
  1. ALEMTUZUMAB [Suspect]
     Active Substance: ALEMTUZUMAB
     Indication: MULTIPLE SCLEROSIS
     Dosage: 12 MG,QD
     Route: 041
     Dates: start: 20180129, end: 20180202

REACTIONS (11)
  - Facial pain [Unknown]
  - Red blood cell count increased [Recovered/Resolved]
  - Herpes ophthalmic [Not Recovered/Not Resolved]
  - Trigeminal neuralgia [Unknown]
  - Headache [Unknown]
  - Neutrophil count decreased [Recovered/Resolved]
  - Constipation [Recovered/Resolved]
  - White blood cell count decreased [Recovered/Resolved]
  - Blindness [Unknown]
  - Lymphocyte count decreased [Recovered/Resolved]
  - Herpes virus infection [Not Recovered/Not Resolved]

NARRATIVE: CASE EVENT DATE: 20180131
